FAERS Safety Report 9179189 (Version 1)
Quarter: 2013Q1

REPORT INFORMATION
  Report Type: Spontaneous
  Country: AU (occurrence: AU)
  Receive Date: 20130321
  Receipt Date: 20130321
  Transmission Date: 20140127
  Serious: Yes (Hospitalization)
  Sender: FDA-Public Use
  Company Number: AU-EISAI INC-E2020-12111-SPO-AU

PATIENT
  Age: 85 Year
  Sex: Female

DRUGS (3)
  1. ARICEPT [Suspect]
     Indication: DEMENTIA
     Route: 048
  2. ARICEPT [Suspect]
     Route: 048
  3. EFEXOR XR [Concomitant]
     Indication: DEPRESSION
     Dosage: 75MG IN THE MORNING-150MG AT NIGHT

REACTIONS (4)
  - Panic attack [Unknown]
  - Abnormal behaviour [Unknown]
  - Crying [Unknown]
  - Aphasia [Unknown]
